FAERS Safety Report 5707179-X (Version None)
Quarter: 2008Q2

REPORT INFORMATION
  Report Type: 
  Country: None (occurrence: None)
  Receive Date: 20080416
  Receipt Date: 20080407
  Transmission Date: 20081010
  Serious: Yes (Other)
  Sender: FDA-Public Use
  Company Number: JP-MERCK-0712USA08646

PATIENT
  Age: 69 Year
  Sex: Female

DRUGS (7)
  1. ZOCOR [Suspect]
     Indication: HYPERCHOLESTEROLAEMIA
     Route: 048
     Dates: start: 20071113, end: 20071117
  2. DIOVAN [Concomitant]
     Indication: HYPERTENSION
     Route: 048
     Dates: start: 20060411
  3. AMLODIN [Concomitant]
     Indication: HYPERTENSION
     Route: 048
     Dates: start: 20060411
  4. GASTER D [Concomitant]
     Indication: GASTRIC ULCER
     Route: 048
     Dates: start: 20030322
  5. RIZE [Concomitant]
     Indication: INSOMNIA
     Route: 048
     Dates: start: 20060214
  6. KETOPROFEN [Concomitant]
     Indication: BACK PAIN
     Route: 061
  7. HALCION [Concomitant]
     Indication: INSOMNIA
     Route: 048
     Dates: start: 20060214

REACTIONS (2)
  - ARTHRALGIA [None]
  - JOINT SWELLING [None]
